FAERS Safety Report 8000233-1 (Version None)
Quarter: 2011Q4

REPORT INFORMATION
  Report Type: 
  Country: None (occurrence: None)
  Receive Date: 20111220
  Receipt Date: 20111220
  Transmission Date: 20120403
  Serious: Yes (Other)
  Sender: FDA-Public Use
  Company Number: None

PATIENT
  Sex: Female

DRUGS (1)
  1. UREA PEROXIDE [Suspect]
     Indication: EAR DISORDER
     Dosage: / AURAL

REACTIONS (3)
  - EAR DISORDER [None]
  - CONDITION AGGRAVATED [None]
  - DEAFNESS [None]
